FAERS Safety Report 7286660-9 (Version None)
Quarter: 2011Q1

REPORT INFORMATION
  Report Type: 
  Country: None (occurrence: None)
  Receive Date: 20110210
  Receipt Date: 20110208
  Transmission Date: 20110831
  Serious: Yes (Other)
  Sender: FDA-Public Use
  Company Number: US-PFIZER INC-2008055806

PATIENT
  Sex: Female
  Weight: 49.9 kg

DRUGS (5)
  1. OXYCONTIN [Concomitant]
  2. XANAX [Concomitant]
  3. PERCOCET [Concomitant]
  4. DIFLUCAN [Suspect]
  5. FLUCONAZOLE [Suspect]
     Indication: SYSTEMIC CANDIDA

REACTIONS (13)
  - MALAISE [None]
  - DRUG HYPERSENSITIVITY [None]
  - SYSTEMIC LUPUS ERYTHEMATOSUS [None]
  - INFLUENZA LIKE ILLNESS [None]
  - PAIN [None]
  - WEIGHT INCREASED [None]
  - DISABILITY [None]
  - HYPOTHYROIDISM [None]
  - INFECTION [None]
  - WEIGHT DECREASED [None]
  - BLOOD PRESSURE INCREASED [None]
  - AUTOIMMUNE THYROIDITIS [None]
  - PYREXIA [None]
